FAERS Safety Report 8312976-0 (Version None)
Quarter: 2012Q2

REPORT INFORMATION
  Report Type: 
  Country: None (occurrence: None)
  Receive Date: 20120426
  Receipt Date: 20120414
  Transmission Date: 20120825
  Serious: Yes (Hospitalization)
  Sender: FDA-Public Use
  Company Number: US-JNJFOC-20120407406

PATIENT
  Sex: Male
  Weight: 70.31 kg

DRUGS (15)
  1. IBUPROFEN (ADVIL) [Concomitant]
  2. ATIVAN [Concomitant]
  3. TRAMADOL HCL [Concomitant]
  4. PREDNISONE TAB [Concomitant]
  5. OMEPRAZOLE [Concomitant]
  6. ACTIGALL [Concomitant]
  7. COLESTIPOL HYDROCHLORIDE [Concomitant]
  8. HYDROXYZINE [Concomitant]
  9. REMICADE [Suspect]
     Indication: INFLAMMATORY BOWEL DISEASE
     Route: 042
     Dates: start: 20111030
  10. LOPERAMIDE [Concomitant]
  11. OXYCODONE/ACETAMINOPHEN [Concomitant]
  12. ANTIBIOTICS FOR IBD [Concomitant]
  13. AMBIEN [Concomitant]
  14. HYDROCORTISONE [Concomitant]
  15. GUAR GUM [Concomitant]

REACTIONS (1)
  - GASTROENTERITIS [None]
